FAERS Safety Report 5870846-1 (Version None)
Quarter: 2008Q3

REPORT INFORMATION
  Report Type: 
  Country: None (occurrence: None)
  Receive Date: 20080904
  Receipt Date: 20080901
  Transmission Date: 20090109
  Serious: Yes (Other)
  Sender: FDA-Public Use
  Company Number: CN-ASTRAZENECA-2008AP05924

PATIENT
  Age: 34 Year
  Sex: Female

DRUGS (2)
  1. PROPOFOL [Suspect]
     Indication: ANAESTHESIA
     Route: 041
  2. FENTANYL-25 [Suspect]
     Indication: ANAESTHESIA
     Route: 041

REACTIONS (1)
  - RETINAL ARTERY SPASM [None]
